FAERS Safety Report 7203661-7 (Version None)
Quarter: 2010Q4

REPORT INFORMATION
  Report Type: 
  Country: None (occurrence: None)
  Receive Date: 20101217
  Receipt Date: 20101213
  Transmission Date: 20110411
  Serious: Yes (Hospitalization, Other)
  Sender: FDA-Public Use
  Company Number: 20109423

PATIENT
  Sex: Female

DRUGS (1)
  1. LIORESAL [Suspect]
     Indication: MUSCLE SPASTICITY
     Dosage: DAILY, INTRATHECAL
     Route: 037

REACTIONS (6)
  - DIABETES INSIPIDUS [None]
  - EPIDEMIC PLEURODYNIA [None]
  - MUSCLE SPASMS [None]
  - OVERDOSE [None]
  - POST PROCEDURAL COMPLICATION [None]
  - PRURITUS [None]
